FAERS Safety Report 6039468-6 (Version None)
Quarter: 2009Q1

REPORT INFORMATION
  Report Type: 
  Country: None (occurrence: None)
  Receive Date: 20090114
  Receipt Date: 20081230
  Transmission Date: 20090719
  Serious: Yes (Hospitalization)
  Sender: FDA-Public Use
  Company Number: KV200801487

PATIENT
  Age: 90 Year
  Sex: Female
  Weight: 70.3 kg

DRUGS (2)
  1. ISOSORBIDE MONONITRATE [Suspect]
     Indication: ANGINA PECTORIS
     Dosage: 30 MG, QD, ORAL
     Route: 048
     Dates: start: 20080429
  2. ANTIHYPERTENSIVES [Concomitant]

REACTIONS (5)
  - FALL [None]
  - HEAD INJURY [None]
  - PRODUCT QUALITY ISSUE [None]
  - SUBDURAL HAEMATOMA [None]
  - SYNCOPE [None]
